FAERS Safety Report 7793690-7 (Version None)
Quarter: 2011Q4

REPORT INFORMATION
  Report Type: 
  Country: None (occurrence: None)
  Receive Date: 20111003
  Receipt Date: 20110923
  Transmission Date: 20120403
  Serious: Yes (Disabling)
  Sender: FDA-Public Use
  Company Number: US-US-EMD SERONO, INC.-7085410

PATIENT
  Sex: Female

DRUGS (1)
  1. REBIF [Suspect]
     Indication: MULTIPLE SCLEROSIS
     Route: 058
     Dates: start: 20060104

REACTIONS (5)
  - HAND DEFORMITY [None]
  - INJECTION SITE PAIN [None]
  - NEURALGIA [None]
  - GAIT DISTURBANCE [None]
  - INJECTION SITE REACTION [None]
